FAERS Safety Report 5874364-6 (Version None)
Quarter: 2008Q3

REPORT INFORMATION
  Report Type: 
  Country: None (occurrence: None)
  Receive Date: 20080908
  Receipt Date: 20080903
  Transmission Date: 20090109
  Serious: Yes (Hospitalization)
  Sender: FDA-Public Use
  Company Number: US-MERCK-0809USA00451

PATIENT
  Age: 65 Year
  Sex: Female

DRUGS (4)
  1. JANUVIA [Suspect]
     Indication: TYPE 2 DIABETES MELLITUS
     Route: 048
     Dates: start: 20080701
  2. VITAMINS (UNSPECIFIED) [Concomitant]
     Route: 065
  3. ACIPHEX [Concomitant]
     Route: 065
  4. ZYRTEC [Concomitant]
     Route: 065

REACTIONS (1)
  - UPPER RESPIRATORY TRACT INFECTION [None]
